FAERS Safety Report 6649240-1 (Version None)
Quarter: 2010Q1

REPORT INFORMATION
  Report Type: 
  Country: None (occurrence: None)
  Receive Date: 20100319
  Receipt Date: 20091218
  Transmission Date: 20100710
  Serious: Yes (Congenital Anomaly, Other)
  Sender: FDA-Public Use
  Company Number: AUR-APL-2010-00741

PATIENT
  Sex: Male
  Weight: 2.88 kg

DRUGS (2)
  1. ZIDOVUDINE [Suspect]
     Indication: HIV INFECTION
     Dosage: TRANSPLACENT
     Route: 062
     Dates: start: 20070313
  2. NELFINAVIR [Suspect]
     Indication: HIV INFECTION
     Dosage: TRANSPLACENT
     Route: 064
     Dates: start: 20070313, end: 20070607

REACTIONS (2)
  - DRUG EXPOSURE DURING PREGNANCY [None]
  - PREGNANCY [None]
